FAERS Safety Report 7642334-3 (Version None)
Quarter: 2011Q3

REPORT INFORMATION
  Report Type: 
  Country: None (occurrence: None)
  Receive Date: 20110728
  Receipt Date: 20110719
  Transmission Date: 20111222
  Serious: Yes (Other)
  Sender: FDA-Public Use
  Company Number: GB-ALLERGAN-1100552US

PATIENT

DRUGS (3)
  1. PLACEBO [Suspect]
     Indication: HYPERTONIC BLADDER
     Dosage: 200 UNITS, SINGLE
     Route: 030
  2. DYSPORT [Suspect]
     Indication: HYPERTONIC BLADDER
     Dosage: 500 UNITS, SINGLE
     Route: 030
     Dates: start: 20100824, end: 20100824
  3. BOTULINUM TOXIN TYPE A [Suspect]
     Indication: HYPERTONIC BLADDER
     Dosage: 200 UNITS, SINGLE
     Route: 030

REACTIONS (1)
  - WRONG DRUG ADMINISTERED [None]
